FAERS Safety Report 10509127 (Version 1)
Quarter: 2014Q3

REPORT INFORMATION
  Report Type: Spontaneous
  Country: US (occurrence: None)
  Receive Date: 20140915
  Receipt Date: 20140915
  Transmission Date: 20150326
  Serious: Yes (Other)
  Sender: FDA-Public Use
  Company Number: 2013-US-003962

PATIENT
  Age: 16 Year
  Sex: Male
  Weight: 52.2 kg

DRUGS (7)
  1. PAXIL [Concomitant]
     Active Substance: PAROXETINE HYDROCHLORIDE
  2. MODAFINIL (MODAFINIL) [Suspect]
     Active Substance: MODAFINIL
     Indication: NARCOLEPSY
     Route: 048
  3. PROBIOTICS AGENT CULTURELLE (PROBIOTICS NOS) [Concomitant]
  4. XYREM [Suspect]
     Active Substance: SODIUM OXYBATE
     Indication: NARCOLEPSY
     Route: 048
     Dates: start: 20130927, end: 2013
  5. XYREM [Suspect]
     Active Substance: SODIUM OXYBATE
     Indication: CATAPLEXY
     Route: 048
     Dates: start: 20130927, end: 2013
  6. MIRALAX DC (MACROGOL) [Concomitant]
  7. EFFEXOR [Suspect]
     Active Substance: VENLAFAXINE HYDROCHLORIDE
     Indication: CATAPLEXY
     Route: 048

REACTIONS (7)
  - Mycotic allergy [None]
  - Weight decreased [None]
  - Fatigue [None]
  - Chest pain [None]
  - Constipation [None]
  - Decreased appetite [None]
  - Unevaluable event [None]

NARRATIVE: CASE EVENT DATE: 201311
